FAERS Safety Report 17946040 (Version 1)
Quarter: 2020Q2

REPORT INFORMATION
  Report Type: Spontaneous
  Country: US (occurrence: US)
  Receive Date: 20200626
  Receipt Date: 20200626
  Transmission Date: 20200714
  Serious: No
  Sender: FDA-Public Use
  Company Number: US-009507513-2006USA008819

PATIENT
  Age: 28 Year
  Sex: Female

DRUGS (2)
  1. NEXPLANON [Suspect]
     Active Substance: ETONOGESTREL
     Indication: VAGINAL HAEMORRHAGE
  2. NEXPLANON [Suspect]
     Active Substance: ETONOGESTREL
     Indication: CONTRACEPTION
     Dosage: 1 IMPLANT, ONCE; IT IS SUBDERMAL IMPLANT IN ARM
     Route: 059
     Dates: start: 201812

REACTIONS (4)
  - Product use in unapproved indication [Unknown]
  - Obesity [Unknown]
  - Vaginal haemorrhage [Unknown]
  - Drug ineffective for unapproved indication [Unknown]

NARRATIVE: CASE EVENT DATE: 201812
